FAERS Safety Report 4478183-7 (Version None)
Quarter: 2004Q3

REPORT INFORMATION
  Report Type: 
  Country: None (occurrence: None)
  Receive Date: 20040923
  Receipt Date: 20040722
  Transmission Date: 20050211
  Serious: No
  Sender: FDA-Public Use
  Company Number: USA040773328

PATIENT
  Age: 63 Year
  Sex: Female
  Weight: 59 kg

DRUGS (8)
  1. FORTEO [Suspect]
     Indication: OSTEOPOROSIS
     Dosage: 20 UG/1 DAY
     Dates: start: 20040618
  2. LISINOPRIL [Concomitant]
  3. ACIPHEX [Concomitant]
  4. SYNTHROID [Concomitant]
  5. MAXZIDE [Concomitant]
  6. TRIAMTERENE [Concomitant]
  7. FLUID RETENTION [Concomitant]
  8. CALCIUM [Concomitant]

REACTIONS (5)
  - ARTHRALGIA [None]
  - NASOPHARYNGITIS [None]
  - PAIN [None]
  - PHARYNGOLARYNGEAL PAIN [None]
  - RHINORRHOEA [None]
